FAERS Safety Report 8990673 (Version 2)
Quarter: 2013Q1

REPORT INFORMATION
  Report Type: Spontaneous
  Country: US (occurrence: US)
  Receive Date: 20121228
  Receipt Date: 20130104
  Transmission Date: 20140127
  Serious: Yes (Other)
  Sender: FDA-Public Use
  Company Number: US-JNJFOC-20121211810

PATIENT
  Sex: Female
  Weight: 63.5 kg

DRUGS (2)
  1. TRINESSA [Suspect]
     Indication: CONTRACEPTION
     Route: 048
     Dates: start: 201201, end: 20120501
  2. TRINESSA [Suspect]
     Indication: CONTRACEPTION
     Route: 048
     Dates: start: 20120501, end: 20120531

REACTIONS (1)
  - Breast swelling [Not Recovered/Not Resolved]
